FAERS Safety Report 23258996 (Version 1)
Quarter: 2023Q4

REPORT INFORMATION
  Report Type: Spontaneous
  Country: US (occurrence: US)
  Receive Date: 20231204
  Receipt Date: 20231204
  Transmission Date: 20240110
  Serious: No
  Sender: FDA-Public Use
  Company Number: US-Ipsen Biopharmaceuticals, Inc.-2023-26823

PATIENT
  Age: 32 Year
  Sex: Female

DRUGS (7)
  1. DYSPORT [Suspect]
     Active Substance: ABOBOTULINUMTOXINA
     Indication: Skin wrinkling
     Route: 065
     Dates: start: 20230911, end: 20230911
  2. DYSPORT [Suspect]
     Active Substance: ABOBOTULINUMTOXINA
     Indication: Off label use
  3. DYSPORT [Suspect]
     Active Substance: ABOBOTULINUMTOXINA
     Indication: Skin wrinkling
  4. DYSPORT [Suspect]
     Active Substance: ABOBOTULINUMTOXINA
     Indication: Skin wrinkling
  5. HYALURONIC ACID\LIDOCAINE [Suspect]
     Active Substance: HYALURONIC ACID\LIDOCAINE
     Indication: Skin cosmetic procedure
     Route: 065
     Dates: start: 20230911, end: 20230911
  6. HYALURONIC ACID [Suspect]
     Active Substance: HYALURONIC ACID
     Indication: Skin cosmetic procedure
     Route: 065
     Dates: start: 20230911, end: 20230911
  7. HYALURONIC ACID [Suspect]
     Active Substance: HYALURONIC ACID
     Indication: Skin cosmetic procedure
     Route: 065
     Dates: start: 20230911, end: 20230911

REACTIONS (5)
  - Exposure to SARS-CoV-2 [Unknown]
  - Swelling face [Recovered/Resolved]
  - Mass [Recovered/Resolved]
  - Tenderness [Recovered/Resolved]
  - Off label use [Unknown]

NARRATIVE: CASE EVENT DATE: 20230911
